FAERS Safety Report 17264040 (Version 1)
Quarter: 2020Q1

REPORT INFORMATION
  Report Type: Spontaneous
  Country: US (occurrence: US)
  Receive Date: 20200113
  Receipt Date: 20200113
  Transmission Date: 20200409
  Serious: No
  Sender: FDA-Public Use
  Company Number: None

PATIENT
  Age: 24 Year
  Sex: Female
  Weight: 89.1 kg

DRUGS (1)
  1. HUMIRA [Suspect]
     Active Substance: ADALIMUMAB
     Indication: HIDRADENITIS
     Dosage: ?          OTHER FREQUENCY:EVERY WEEK;?
     Route: 030
     Dates: start: 20190909, end: 20191203

REACTIONS (7)
  - Depression [None]
  - Skin discolouration [None]
  - Pruritus [None]
  - Pain in extremity [None]
  - Skin exfoliation [None]
  - Alopecia [None]
  - Psoriasis [None]

NARRATIVE: CASE EVENT DATE: 20191010
